FAERS Safety Report 21336743 (Version 1)
Quarter: 2022Q3

REPORT INFORMATION
  Report Type: Spontaneous
  Country: SG (occurrence: None)
  Receive Date: 20220915
  Receipt Date: 20220915
  Transmission Date: 20221026
  Serious: Yes (Life-Threatening, Hospitalization, Other)
  Sender: FDA-Public Use
  Company Number: SG-MICRO LABS LIMITED-ML2022-04601

PATIENT
  Sex: Female

DRUGS (3)
  1. FLUOXETINE [Suspect]
     Active Substance: FLUOXETINE HYDROCHLORIDE
  2. AMLODIPINE [Suspect]
     Active Substance: AMLODIPINE BESYLATE
     Dosage: ESTIMATED 350 MG
  3. ZOPICLONE [Suspect]
     Active Substance: ZOPICLONE

REACTIONS (6)
  - Distributive shock [Unknown]
  - Tachycardia [Unknown]
  - Loss of consciousness [Unknown]
  - Toxicity to various agents [Unknown]
  - Hypotension [Unknown]
  - Somnolence [Unknown]
